FAERS Safety Report 17371819 (Version 1)
Quarter: 2020Q1

REPORT INFORMATION
  Report Type: Spontaneous
  Country: US (occurrence: US)
  Receive Date: 20200205
  Receipt Date: 20200205
  Transmission Date: 20200409
  Serious: Yes (Death, Other)
  Sender: FDA-Public Use
  Company Number: US-ASTRAZENECA-2020SE16379

PATIENT
  Sex: Female

DRUGS (2)
  1. LYNPARZA [Suspect]
     Active Substance: OLAPARIB
     Indication: OVARIAN CANCER STAGE III
     Route: 048
     Dates: start: 2015
  2. LYNPARZA [Suspect]
     Active Substance: OLAPARIB
     Indication: OVARIAN CANCER STAGE III
     Dosage: DOSE DECREASED
     Route: 048
     Dates: start: 201603

REACTIONS (6)
  - Cytopenia [Not Recovered/Not Resolved]
  - White blood cell count decreased [Unknown]
  - Therapy change [Unknown]
  - Haemoglobin decreased [Unknown]
  - Acute myeloid leukaemia [Fatal]
  - Cardiac failure [Unknown]

NARRATIVE: CASE EVENT DATE: 201503
